FAERS Safety Report 14115920 (Version 1)
Quarter: 2017Q4

REPORT INFORMATION
  Report Type: Spontaneous
  Country: US (occurrence: US)
  Receive Date: 20171023
  Receipt Date: 20171023
  Transmission Date: 20180321
  Serious: No
  Sender: FDA-Public Use
  Company Number: US-ALLERGAN-1747683US

PATIENT
  Sex: Female
  Weight: 63.49 kg

DRUGS (10)
  1. AMITIZA [Concomitant]
     Active Substance: LUBIPROSTONE
     Indication: PRODUCT USED FOR UNKNOWN INDICATION
     Route: 065
  2. AMLODIPINE [Concomitant]
     Active Substance: AMLODIPINE BESYLATE
     Indication: PRODUCT USED FOR UNKNOWN INDICATION
     Dosage: 5 MG, UNKNOWN
     Route: 065
  3. PANTOPRAZOLE [Concomitant]
     Active Substance: PANTOPRAZOLE
     Indication: PRODUCT USED FOR UNKNOWN INDICATION
     Dosage: 40 MG, UNKNOWN
     Route: 065
  4. SYNTHROID [Concomitant]
     Active Substance: LEVOTHYROXINE SODIUM
     Indication: PRODUCT USED FOR UNKNOWN INDICATION
     Dosage: 75 MG, UNKNOWN
     Route: 065
  5. LINZESS [Suspect]
     Active Substance: LINACLOTIDE
     Indication: CONSTIPATION
     Dosage: 145 ?G, UNKNOWN
     Route: 065
  6. SIMVASTATIN. [Concomitant]
     Active Substance: SIMVASTATIN
     Indication: PRODUCT USED FOR UNKNOWN INDICATION
     Dosage: 20 MG, UNKNOWN
     Route: 065
  7. DULOXETINE. [Concomitant]
     Active Substance: DULOXETINE
     Indication: DEPRESSION
     Dosage: 60 MG, UNKNOWN
  8. ZYRTEC [Concomitant]
     Active Substance: CETIRIZINE HYDROCHLORIDE
     Indication: SEASONAL ALLERGY
     Dosage: UNK UNK, UNKNOWN
     Route: 065
  9. HYDROCHLOROTHIAZIDE. [Concomitant]
     Active Substance: HYDROCHLOROTHIAZIDE
     Indication: DIURETIC THERAPY
     Dosage: 12.5 MG, UNKNOWN
     Route: 065
  10. VALSARTAN. [Concomitant]
     Active Substance: VALSARTAN
     Indication: HYPERTENSION
     Dosage: 320 MG, UNKNOWN
     Route: 065

REACTIONS (3)
  - Cystitis [Not Recovered/Not Resolved]
  - Bedridden [Unknown]
  - Peripheral swelling [Not Recovered/Not Resolved]
